FAERS Safety Report 6508728-4 (Version None)
Quarter: 2009Q4

REPORT INFORMATION
  Report Type: 
  Country: None (occurrence: None)
  Receive Date: 20091221
  Receipt Date: 20081223
  Transmission Date: 20100525
  Serious: No
  Sender: FDA-Public Use
  Company Number: US-ASTRAZENECA-2008UW28726

PATIENT
  Age: 85 Year
  Sex: Female

DRUGS (6)
  1. CRESTOR [Suspect]
     Indication: BLOOD CHOLESTEROL INCREASED
     Route: 048
  2. OMEPRAZOLE [Suspect]
     Dosage: UNKNOWN
     Route: 048
  3. LEVOTHYROXINE SODIUM [Concomitant]
     Dosage: 75
  4. ESTRADIOL [Concomitant]
     Dosage: 0.5
  5. LISINOPRIL AND HYDROCHLOROTHIAZIDE [Concomitant]
     Route: 048
  6. ATENOLOL [Concomitant]

REACTIONS (3)
  - DYSPEPSIA [None]
  - MUSCLE SPASMS [None]
  - PAIN IN EXTREMITY [None]
